FAERS Safety Report 4582519-6 (Version None)
Quarter: 2005Q1

REPORT INFORMATION
  Report Type: 
  Country: None (occurrence: None)
  Receive Date: 20050211
  Receipt Date: 20050211
  Transmission Date: 20050727
  Serious: Yes (Other)
  Sender: FDA-Public Use
  Company Number: None

PATIENT
  Age: 15 Year
  Sex: Female
  Weight: 87.0906 kg

DRUGS (4)
  1. TEGRETOL [Suspect]
     Indication: BIPOLAR DISORDER
     Dosage: 100 MG Q AM AND 150 MG HS; 100 MG BID
     Dates: start: 20050116, end: 20050121
  2. TEGRETOL [Suspect]
     Indication: DEPRESSION
     Dosage: 100 MG Q AM AND 150 MG HS; 100 MG BID
     Dates: start: 20050116, end: 20050121
  3. TEGRETOL [Suspect]
     Indication: BIPOLAR DISORDER
     Dosage: 100 MG Q AM AND 150 MG HS; 100 MG BID
     Dates: start: 20050121, end: 20050127
  4. TEGRETOL [Suspect]
     Indication: DEPRESSION
     Dosage: 100 MG Q AM AND 150 MG HS; 100 MG BID
     Dates: start: 20050121, end: 20050127

REACTIONS (10)
  - CHEST PAIN [None]
  - DEPRESSION [None]
  - FATIGUE [None]
  - FEELING ABNORMAL [None]
  - PAIN [None]
  - PYREXIA [None]
  - RASH [None]
  - RASH MACULAR [None]
  - RASH PRURITIC [None]
  - SWELLING FACE [None]
